FAERS Safety Report 7186776-1 (Version None)
Quarter: 2010Q4

REPORT INFORMATION
  Report Type: 
  Country: None (occurrence: None)
  Receive Date: 20101222
  Receipt Date: 20101213
  Transmission Date: 20110411
  Serious: Yes (Congenital Anomaly)
  Sender: FDA-Public Use
  Company Number: A0679391A

PATIENT
  Sex: Female
  Weight: 2 kg

DRUGS (5)
  1. PAXIL [Suspect]
     Dosage: 40MG PER DAY
  2. PAXIL CR [Suspect]
  3. PRENATAL VITAMINS [Concomitant]
  4. SEROQUEL [Concomitant]
  5. TERBUTALINE SULFATE [Concomitant]

REACTIONS (2)
  - ATRIAL SEPTAL DEFECT [None]
  - DRUG EXPOSURE DURING PREGNANCY [None]
